FAERS Safety Report 4752590-7 (Version None)
Quarter: 2005Q3

REPORT INFORMATION
  Report Type: 
  Country: None (occurrence: None)
  Receive Date: 20050824
  Receipt Date: 20050815
  Transmission Date: 20060218
  Serious: Yes (Death, Other)
  Sender: FDA-Public Use
  Company Number: 2005116112

PATIENT
  Sex: Female
  Weight: 58.9676 kg

DRUGS (4)
  1. BEXTRA [Suspect]
     Indication: ARTHRALGIA
     Dosage: 10 MG (10 MG, 1 IN 1 D), ORAL
     Route: 048
     Dates: start: 20010101, end: 20031001
  2. LEVOXYL [Concomitant]
  3. LOTENSIN [Concomitant]
  4. LASIX [Concomitant]

REACTIONS (7)
  - ANAEMIA [None]
  - BACK PAIN [None]
  - DRUG INEFFECTIVE [None]
  - GASTROOESOPHAGEAL REFLUX DISEASE [None]
  - MULTIPLE MYELOMA [None]
  - OSTEOPOROSIS [None]
  - SPINAL COLUMN STENOSIS [None]
